FAERS Safety Report 6409626-7 (Version None)
Quarter: 2009Q4

REPORT INFORMATION
  Report Type: 
  Country: None (occurrence: None)
  Receive Date: 20091022
  Receipt Date: 20091009
  Transmission Date: 20100525
  Serious: Yes (Other)
  Sender: FDA-Public Use
  Company Number: US-PFIZER INC-2009283138

PATIENT
  Sex: Male
  Weight: 114.29 kg

DRUGS (1)
  1. CHANTIX [Suspect]
     Indication: SMOKING CESSATION THERAPY
     Dosage: FREQUENCY: 2X/DAY,
     Dates: start: 20090928

REACTIONS (5)
  - CHEST DISCOMFORT [None]
  - CHILLS [None]
  - HAEMATEMESIS [None]
  - PYREXIA [None]
  - WEIGHT DECREASED [None]
